FAERS Safety Report 19903611 (Version 2)
Quarter: 2021Q4

REPORT INFORMATION
  Report Type: Report from Study
  Country: None (occurrence: US)
  Receive Date: 20211001
  Receipt Date: 20211001
  Transmission Date: 20220303
  Serious: Yes (Other)
  Sender: FDA-Public Use
  Company Number: US-ABBVIE-21K-163-4093045-00

PATIENT
  Age: 74 Year
  Sex: Male

DRUGS (3)
  1. HUMIRA [Suspect]
     Active Substance: ADALIMUMAB
     Indication: Psoriasis
     Route: 058
     Dates: start: 2018, end: 20210906
  2. PFIZER-BIONTECH COVID-19 VACCINE [Concomitant]
     Active Substance: TOZINAMERAN
     Indication: COVID-19 immunisation
     Route: 030
     Dates: start: 20210224, end: 20210224
  3. PFIZER-BIONTECH COVID-19 VACCINE [Concomitant]
     Active Substance: TOZINAMERAN
     Route: 030
     Dates: start: 20210317, end: 20210317

REACTIONS (7)
  - Atrial fibrillation [Recovered/Resolved]
  - Abdominal hernia [Recovered/Resolved]
  - Intestinal mass [Recovered/Resolved]
  - Abdominal pain [Recovered/Resolved]
  - Dysuria [Recovered/Resolved]
  - Defaecation disorder [Recovered/Resolved]
  - Intra-abdominal fluid collection [Recovered/Resolved]

NARRATIVE: CASE EVENT DATE: 20180101
